FAERS Safety Report 7488310-5 (Version None)
Quarter: 2011Q2

REPORT INFORMATION
  Report Type: 
  Country: None (occurrence: None)
  Receive Date: 20110518
  Receipt Date: 20110504
  Transmission Date: 20111010
  Serious: Yes (Other)
  Sender: FDA-Public Use
  Company Number: GB-JNJFOC-20110503097

PATIENT
  Age: 61 Year
  Sex: Male
  Weight: 91 kg

DRUGS (3)
  1. METHOTREXATE [Concomitant]
     Dates: start: 20051116
  2. REMICADE [Suspect]
     Indication: RHEUMATOID ARTHRITIS
     Route: 042
     Dates: start: 20051115, end: 20060215
  3. HYDROXYCHLOROQUINE SULFATE [Concomitant]
     Dates: start: 20090917

REACTIONS (1)
  - SKIN CANCER [None]
